FAERS Safety Report 6986120-6 (Version None)
Quarter: 2010Q3

REPORT INFORMATION
  Report Type: 
  Country: None (occurrence: None)
  Receive Date: 20100910
  Receipt Date: 20100826
  Transmission Date: 20110219
  Serious: Yes (Other)
  Sender: FDA-Public Use
  Company Number: 1000016034

PATIENT
  Age: 80 Year
  Sex: Female

DRUGS (3)
  1. FOSFOMYCIN (FOSFOMYCIN TROMETAMOL) (GRANULATE) [Suspect]
     Indication: URINARY TRACT INFECTION
     Dosage: 3 GRAMS (3 GM, 1 IN 1 D), ORAL
     Route: 048
     Dates: start: 20100822, end: 20100822
  2. CIPROFLOXACIN [Suspect]
     Indication: URINARY TRACT INFECTION
     Dosage: 1000 MG (500 MG, 2 IN 1 D), ORAL
     Route: 048
     Dates: start: 20100811, end: 20100821
  3. PREVISCAN (TABLETS) [Suspect]
     Indication: AORTIC VALVE REPLACEMENT
     Dosage: 1/2 TABLET DAILY (0.5 DOSAGE FORMS, 1 IN 1 D), ORAL
     Route: 048

REACTIONS (1)
  - INTERNATIONAL NORMALISED RATIO DECREASED [None]
